FAERS Safety Report 13258044 (Version 1)
Quarter: 2017Q1

REPORT INFORMATION
  Report Type: Spontaneous
  Country: ZA (occurrence: ZA)
  Receive Date: 20170221
  Receipt Date: 20170221
  Transmission Date: 20170428
  Serious: Yes (Death, Hospitalization)
  Sender: FDA-Public Use
  Company Number: ZA-ABBVIE-17P-143-1878884-00

PATIENT
  Age: 0 Year
  Sex: Male
  Weight: 1.3 kg

DRUGS (1)
  1. SURVANTA [Suspect]
     Active Substance: BERACTANT
     Indication: NEONATAL RESPIRATORY DISTRESS SYNDROME PROPHYLAXIS
     Dosage: SECOND DOSE ON MONDAY 13-FEB-2017
     Route: 065

REACTIONS (3)
  - Pulmonary haemorrhage [Fatal]
  - Infection [Not Recovered/Not Resolved]
  - Malaise [Fatal]

NARRATIVE: CASE EVENT DATE: 201702
